FAERS Safety Report 21609062 (Version 1)
Quarter: 2022Q4

REPORT INFORMATION
  Report Type: Report from Study
  Country: US (occurrence: US)
  Receive Date: 20221117
  Receipt Date: 20221117
  Transmission Date: 20230112
  Serious: Yes (Death)
  Sender: FDA-Public Use
  Company Number: US-ABBVIE-4202059

PATIENT
  Sex: Male
  Weight: 110 kg

DRUGS (24)
  1. VENCLEXTA [Suspect]
     Active Substance: VENETOCLAX
     Indication: Acute myeloid leukaemia
     Dosage: FORM STRENGTH 100 MILLIGRAMS
     Route: 048
     Dates: end: 20211118
  2. MORPHINE [Concomitant]
     Active Substance: MORPHINE
     Indication: Pain
     Dosage: 2 TABLET?FORM STRENGTH15 MILLIGRAMS
     Route: 048
     Dates: end: 20211118
  3. MORPHINE [Concomitant]
     Active Substance: MORPHINE
     Indication: Pain
     Dosage: TABLET PRN?FORM STRENGTH15 MILLIGRAMS
     Route: 048
     Dates: end: 20211118
  4. OXYCODONE [Concomitant]
     Active Substance: OXYCODONE
     Indication: Product used for unknown indication
     Dosage: FORM STRENGTH 5 MILLIGRAMS
     Route: 048
  5. TIMOLOL MALEATE [Concomitant]
     Active Substance: TIMOLOL MALEATE
     Indication: Product used for unknown indication
     Dosage: 1 DROP BOTH EYES
     Route: 047
     Dates: end: 20211118
  6. ALLOPURINOL [Concomitant]
     Active Substance: ALLOPURINOL
     Indication: Product used for unknown indication
     Route: 048
     Dates: end: 20211118
  7. HYDROXYUREA [Concomitant]
     Active Substance: HYDROXYUREA
     Indication: Product used for unknown indication
     Dosage: TIME INTERVAL: 0.33333333 DAYS: TAKE 2 CAPSULE THREE TIMES A DAY?FORM STRENGTH 500 MILLIGRAMS
     Route: 048
     Dates: end: 20211118
  8. PRILOSEC [Concomitant]
     Active Substance: OMEPRAZOLE MAGNESIUM
     Indication: Product used for unknown indication
     Dosage: CAPSULE DELAYED RELEASE
     Route: 048
     Dates: end: 20211118
  9. TRAZODONE HCL [Concomitant]
     Active Substance: TRAZODONE HYDROCHLORIDE
     Indication: Anxiety
     Dosage: TIME INTERVAL: 0.33333333 DAYS: PRN?FORM STRENGTH 50 MILLIGRAMS
     Route: 048
     Dates: end: 20211118
  10. TRAZODONE HCL [Concomitant]
     Active Substance: TRAZODONE HYDROCHLORIDE
     Indication: Anxiety
     Dosage: FORM STRENGTH 50 MILLIGRAMS
     Route: 048
  11. GEMFIBROZIL [Concomitant]
     Active Substance: GEMFIBROZIL
     Indication: Product used for unknown indication
     Route: 048
     Dates: end: 20211118
  12. DEXAMETHASONE [Concomitant]
     Active Substance: DEXAMETHASONE
     Indication: Product used for unknown indication
     Dosage: INTRAVENOUS?FORM STRENGTH 4 MILLIGRAMS
     Route: 042
     Dates: start: 20211117, end: 20211117
  13. FUROSEMIDE [Concomitant]
     Active Substance: FUROSEMIDE
     Indication: Product used for unknown indication
     Dosage: FORM STRENGTH 20 MILLIGRAMS
     Route: 048
     Dates: end: 20211118
  14. FUROSEMIDE [Concomitant]
     Active Substance: FUROSEMIDE
     Indication: Product used for unknown indication
     Dosage: FORM STRENGTH 20 MILLIGRAMS
     Route: 048
     Dates: end: 20211118
  15. LATANOPROST [Concomitant]
     Active Substance: LATANOPROST
     Indication: Product used for unknown indication
     Dosage: 1 DROP BOTH EYE BEDTIME
     Route: 047
     Dates: end: 20211118
  16. NIACIN [Concomitant]
     Active Substance: NIACIN
     Indication: Product used for unknown indication
     Dosage: FORM STRENGTH 500 MILLIGRAMS
     Route: 048
     Dates: end: 20211118
  17. NIACIN [Concomitant]
     Active Substance: NIACIN
     Indication: Product used for unknown indication
     Dosage: 2 TABLETS TWICE A DAY?FORM STRENGTH 500 MILLIGRAMS
     Route: 048
  18. OXYCODONE [Concomitant]
     Active Substance: OXYCODONE
     Indication: Product used for unknown indication
     Dosage: FORM STRENGTH 5 MILLIGRAMS
     Route: 048
     Dates: end: 20211118
  19. DECITABINE [Concomitant]
     Active Substance: DECITABINE
     Indication: Product used for unknown indication
     Dates: end: 20211118
  20. K-DUR [Concomitant]
     Active Substance: POTASSIUM CHLORIDE
     Indication: Product used for unknown indication
     Dosage: EXTENDED RELEASE TABLET
     Route: 048
     Dates: end: 20211118
  21. ONDANSETRON [Concomitant]
     Active Substance: ONDANSETRON
     Indication: Product used for unknown indication
     Dosage: FORM STRENGTH 4 MILLIGRAMS
     Route: 048
     Dates: end: 20211118
  22. HYDROCHLOROTHIAZIDE [Concomitant]
     Active Substance: HYDROCHLOROTHIAZIDE
     Indication: Product used for unknown indication
     Dosage: HALF TABLET DAILY EVERY MORNING BY MOUTH?FORM STRENGTH:25 MILLIGRAMS
     Route: 048
     Dates: end: 20211118
  23. BENADRYL [Concomitant]
     Active Substance: DIPHENHYDRAMINE HYDROCHLORIDE
     Indication: Product used for unknown indication
     Dosage: FORM STRENGTH 25 MILLIGRAMS
     Route: 042
     Dates: start: 20211117, end: 20211117
  24. VITAMIN D [Concomitant]
     Active Substance: VITAMIN D NOS
     Indication: Product used for unknown indication
     Dosage: 400 INT UNIT
     Route: 048
     Dates: end: 20211118

REACTIONS (4)
  - Death [Fatal]
  - Nausea [Unknown]
  - Off label use [Unknown]
  - Deficiency anaemia [Unknown]
